FAERS Safety Report 6718009-1 (Version None)
Quarter: 2010Q2

REPORT INFORMATION
  Report Type: 
  Country: None (occurrence: None)
  Receive Date: 20100510
  Receipt Date: 20100427
  Transmission Date: 20101027
  Serious: Yes (Other)
  Sender: FDA-Public Use
  Company Number: PHHY2010FR27391

PATIENT
  Age: 70 Year
  Sex: Female

DRUGS (1)
  1. RASILEZ [Suspect]
     Dosage: UNK

REACTIONS (1)
  - ACUTE CORONARY SYNDROME [None]
